FAERS Safety Report 4459431-6 (Version None)
Quarter: 2004Q3

REPORT INFORMATION
  Report Type: 
  Country: None (occurrence: None)
  Receive Date: 20040927
  Receipt Date: 20040819
  Transmission Date: 20050211
  Serious: Yes (Other)
  Sender: FDA-Public Use
  Company Number: AU-GLAXOSMITHKLINE-B0343862A

PATIENT
  Age: 32 Year
  Sex: Female

DRUGS (3)
  1. TIMENTIN [Suspect]
     Indication: OSTEOMYELITIS
     Dates: start: 20040304, end: 20040421
  2. CIPROFLOXACIN [Concomitant]
     Indication: OSTEOMYELITIS
     Dosage: 500MG TWICE PER DAY
     Route: 048
     Dates: start: 20040304, end: 20040421
  3. INSULIN [Concomitant]

REACTIONS (13)
  - ABDOMINAL DISTENSION [None]
  - ABDOMINAL PAIN [None]
  - BACK PAIN [None]
  - DIABETIC RETINOPATHY [None]
  - DIARRHOEA [None]
  - DIZZINESS [None]
  - FEELING ABNORMAL [None]
  - HEPATIC PAIN [None]
  - HEPATITIS [None]
  - LOSS OF CONSCIOUSNESS [None]
  - OPTIC NERVE INJURY [None]
  - REGURGITATION OF FOOD [None]
  - VISUAL DISTURBANCE [None]
